FAERS Safety Report 6986901-9 (Version None)
Quarter: 2010Q3

REPORT INFORMATION
  Report Type: 
  Country: None (occurrence: None)
  Receive Date: 20100915
  Receipt Date: 20090811
  Transmission Date: 20110219
  Serious: No
  Sender: FDA-Public Use
  Company Number: US-WYE-H10547909

PATIENT
  Sex: Female
  Weight: 59.02 kg

DRUGS (4)
  1. PRISTIQ [Suspect]
     Indication: BIPOLAR I DISORDER
     Route: 048
     Dates: start: 20090701
  2. TOPAMAX [Concomitant]
  3. IBUPROFEN [Concomitant]
  4. TEMAZEPAM [Concomitant]

REACTIONS (4)
  - FATIGUE [None]
  - LIBIDO DECREASED [None]
  - NAUSEA [None]
  - ORGASM ABNORMAL [None]
